FAERS Safety Report 7250410-2 (Version None)
Quarter: 2011Q1

REPORT INFORMATION
  Report Type: 
  Country: None (occurrence: None)
  Receive Date: 20110128
  Receipt Date: 20110120
  Transmission Date: 20110831
  Serious: Yes (Other)
  Sender: FDA-Public Use
  Company Number: CA-ROCHE-752503

PATIENT
  Sex: Female
  Weight: 54 kg

DRUGS (9)
  1. PREDNISONE [Concomitant]
  2. PANTOLOC [Concomitant]
  3. SALAZOPYRINE [Concomitant]
  4. COD LIVER OIL [Concomitant]
  5. FOLIC ACID [Concomitant]
  6. TOCILIZUMAB [Suspect]
     Indication: RHEUMATOID ARTHRITIS
     Route: 042
     Dates: start: 20100722
  7. METHOTREXATE [Concomitant]
  8. TYLENOL-500 [Concomitant]
  9. CALCIUM [Concomitant]

REACTIONS (3)
  - RHINORRHOEA [None]
  - COLON CANCER [None]
  - NASAL CONGESTION [None]
